FAERS Safety Report 6649925-7 (Version None)
Quarter: 2010Q1

REPORT INFORMATION
  Report Type: 
  Country: None (occurrence: None)
  Receive Date: 20100325
  Receipt Date: 20100316
  Transmission Date: 20100710
  Serious: No
  Sender: FDA-Public Use
  Company Number: US-BIOGENIDEC-2010BI009047

PATIENT
  Sex: Female

DRUGS (2)
  1. AVONEX [Suspect]
     Indication: MULTIPLE SCLEROSIS
     Route: 030
     Dates: end: 20051023
  2. AVONEX [Suspect]
     Route: 030
     Dates: start: 20071201, end: 20091101

REACTIONS (5)
  - ABASIA [None]
  - FALL [None]
  - FEELING COLD [None]
  - MOBILITY DECREASED [None]
  - TREMOR [None]
